FAERS Safety Report 4466075-9 (Version None)
Quarter: 2004Q3

REPORT INFORMATION
  Report Type: 
  Country: None (occurrence: None)
  Receive Date: 20040930
  Receipt Date: 20040930
  Transmission Date: 20050211
  Serious: Yes (Hospitalization)
  Sender: FDA-Public Use
  Company Number: None

PATIENT
  Age: 77 Year
  Sex: Female
  Weight: 45.3597 kg

DRUGS (1)
  1. REMINYL [Suspect]
     Indication: DEMENTIA
     Dosage: REMINYL TID ORAL
     Route: 048

REACTIONS (7)
  - COMA [None]
  - DEPRESSED LEVEL OF CONSCIOUSNESS [None]
  - DYSSTASIA [None]
  - FATIGUE [None]
  - LOSS OF CONSCIOUSNESS [None]
  - SIMPLE PARTIAL SEIZURES [None]
  - TREMOR [None]
